FAERS Safety Report 7996036-4 (Version None)
Quarter: 2011Q4

REPORT INFORMATION
  Report Type: 
  Country: None (occurrence: None)
  Receive Date: 20111220
  Receipt Date: 20111208
  Transmission Date: 20120403
  Serious: Yes (Hospitalization, Other)
  Sender: FDA-Public Use
  Company Number: PHEH2011US009691

PATIENT
  Sex: Male

DRUGS (10)
  1. SPIRIVA [Concomitant]
  2. TASIGNA [Suspect]
     Dosage: 150 MG, BID
     Route: 048
     Dates: end: 20111123
  3. FINASTERIDE [Concomitant]
  4. FUROSEMIDE [Concomitant]
  5. METOPROLOL TARTRATE [Concomitant]
  6. BILTIAGEN [Concomitant]
  7. TASIGNA [Suspect]
     Indication: CHRONIC MYELOID LEUKAEMIA
     Dosage: 300 MG, BID
     Route: 048
     Dates: start: 20111117
  8. ADVAIR DISKUS 100/50 [Concomitant]
  9. LISINOPRIL [Concomitant]
  10. SIMVASTATIN [Concomitant]

REACTIONS (10)
  - CHRONIC OBSTRUCTIVE PULMONARY DISEASE [None]
  - ATELECTASIS [None]
  - DYSPNOEA [None]
  - PNEUMONIA [None]
  - CONSTIPATION [None]
  - ASTHENIA [None]
  - DYSPNOEA EXERTIONAL [None]
  - LUNG INFILTRATION [None]
  - COUGH [None]
  - BLOOD BILIRUBIN INCREASED [None]
